FAERS Safety Report 15483020 (Version 6)
Quarter: 2020Q2

REPORT INFORMATION
  Report Type: Spontaneous
  Country: US (occurrence: US)
  Receive Date: 20181010
  Receipt Date: 20200511
  Transmission Date: 20200713
  Serious: Yes (Other)
  Sender: FDA-Public Use
  Company Number: US-PFIZER INC-2018404367

PATIENT
  Age: 78 Year
  Sex: Female

DRUGS (1)
  1. XELJANZ XR [Suspect]
     Active Substance: TOFACITINIB CITRATE
     Dosage: 11 MG, UNK
     Dates: start: 20180627

REACTIONS (11)
  - Lower limb fracture [Unknown]
  - Pain in extremity [Unknown]
  - Sensitivity to weather change [Unknown]
  - Arthralgia [Unknown]
  - Constipation [Not Recovered/Not Resolved]
  - Exostosis [Unknown]
  - Fall [Unknown]
  - Balance disorder [Unknown]
  - Cyanosis [Unknown]
  - Dizziness postural [Unknown]
  - Joint stiffness [Unknown]

NARRATIVE: CASE EVENT DATE: 2018
